FAERS Safety Report 13425011 (Version 2)
Quarter: 2017Q2

REPORT INFORMATION
  Report Type: Report from Study
  Country: FR (occurrence: FR)
  Receive Date: 20170410
  Receipt Date: 20170414
  Transmission Date: 20170830
  Serious: Yes (Life-Threatening, Hospitalization)
  Sender: FDA-Public Use
  Company Number: FR-ROCHE-1899569

PATIENT
  Age: 68 Year
  Sex: Male
  Weight: 88.5 kg

DRUGS (10)
  1. JANUMET [Concomitant]
     Active Substance: METFORMIN HYDROCHLORIDE\SITAGLIPTIN PHOSPHATE
     Indication: TYPE 2 DIABETES MELLITUS
     Dosage: STARTED BEFORE JUL/2016, 50/1000MG
     Route: 048
  2. APROVEL [Concomitant]
     Active Substance: IRBESARTAN
     Indication: HYPERTENSION
     Route: 065
     Dates: start: 20161122
  3. BEVACIZUMAB [Suspect]
     Active Substance: BEVACIZUMAB
     Dosage: RESTARTED
     Route: 042
  4. BEVACIZUMAB [Suspect]
     Active Substance: BEVACIZUMAB
     Indication: METASTATIC RENAL CELL CARCINOMA
     Dosage: MOST RECENT DOSE (1335 MG) PRIOR TO EVENT ONSET 02/NOV/2016
     Route: 042
     Dates: start: 20160804
  5. GEMCITABINE [Suspect]
     Active Substance: GEMCITABINE\GEMCITABINE HYDROCHLORIDE
     Indication: METASTATIC RENAL CELL CARCINOMA
     Dosage: MOST RECENT DOSE (2500 MG) PRIOR TO EVENT ONSET 02/NOV/2016
     Route: 042
     Dates: start: 20160804
  6. EXFORGE [Concomitant]
     Active Substance: AMLODIPINE BESYLATE\VALSARTAN
     Route: 048
     Dates: start: 20160721
  7. LOXEN (FRANCE) [Concomitant]
     Active Substance: NICARDIPINE HYDROCHLORIDE
     Indication: HYPERTENSION
     Dosage: 50 MG IN MORNING AND EVENING
     Route: 048
     Dates: start: 20161121
  8. APROVEL [Concomitant]
     Active Substance: IRBESARTAN
     Route: 065
     Dates: start: 20161121
  9. CISPLATIN. [Suspect]
     Active Substance: CISPLATIN
     Indication: METASTATIC RENAL CELL CARCINOMA
     Dosage: MOST RECENT DOSE (140 MG) PRIOR TO EVENT ONSET 02/NOV/2016
     Route: 042
     Dates: start: 20160804
  10. EXFORGE [Concomitant]
     Active Substance: AMLODIPINE BESYLATE\VALSARTAN
     Indication: HYPERTENSION
     Dosage: STARTED BEFORE JUL/2016, 160/5 MG
     Route: 048
     Dates: end: 20161121

REACTIONS (4)
  - Hypertension [Recovered/Resolved]
  - Proteinuria [Recovered/Resolved]
  - Renal failure [Recovering/Resolving]
  - Transient ischaemic attack [Unknown]

NARRATIVE: CASE EVENT DATE: 20161123
